FAERS Safety Report 24166786 (Version 1)
Quarter: 2024Q3

REPORT INFORMATION
  Report Type: Spontaneous
  Country: IT (occurrence: IT)
  Receive Date: 20240802
  Receipt Date: 20240802
  Transmission Date: 20241017
  Serious: Yes (Other)
  Sender: MYLAN
  Company Number: IT-UCBSA-2024036008

PATIENT
  Age: 69 Year
  Sex: Female

DRUGS (2)
  1. LEVETIRACETAM [Interacting]
     Active Substance: LEVETIRACETAM
     Indication: Epilepsy
     Dosage: 1500 MILLIGRAM, QD (DAILY)
     Route: 065
  2. DABIGATRAN ETEXILATE MESYLATE [Interacting]
     Active Substance: DABIGATRAN ETEXILATE MESYLATE
     Indication: Anticoagulant therapy
     Dosage: 220 MILLIGRAM, QD (INAPPROPRIATELY LOW DOSE OF DABIGATRAN AT 110 MG ADMINISTERED TWICE DAILY)
     Route: 048

REACTIONS (2)
  - Lacunar stroke [Unknown]
  - Drug interaction [Unknown]
